FAERS Safety Report 23259669 (Version 1)
Quarter: 2023Q4

REPORT INFORMATION
  Report Type: Spontaneous
  Country: ES (occurrence: ES)
  Receive Date: 20231204
  Receipt Date: 20231204
  Transmission Date: 20240110
  Serious: Yes (Other)
  Sender: FDA-Public Use
  Company Number: ES-PFIZER INC-PV202300193492

PATIENT
  Age: 72 Year
  Sex: Female

DRUGS (2)
  1. PALBOCICLIB [Suspect]
     Active Substance: PALBOCICLIB
     Dosage: 125 MG  3 WEEKS EVERY 4 WEEKS
     Dates: start: 20210303
  2. PALBOCICLIB [Suspect]
     Active Substance: PALBOCICLIB
     Dosage: 100 MG
     Dates: start: 202109

REACTIONS (5)
  - Deep vein thrombosis [Unknown]
  - Neutropenia [Unknown]
  - Pain in extremity [Unknown]
  - Movement disorder [Unknown]
  - Cellulitis [Unknown]

NARRATIVE: CASE EVENT DATE: 20210101
